FAERS Safety Report 18054423 (Version 1)
Quarter: 2020Q3

REPORT INFORMATION
  Report Type: Spontaneous
  Country: US (occurrence: US)
  Receive Date: 20200722
  Receipt Date: 20200722
  Transmission Date: 20201103
  Serious: Yes (Hospitalization)
  Sender: FDA-Public Use
  Company Number: None

PATIENT
  Age: 25 Year
  Sex: Female
  Weight: 110 kg

DRUGS (1)
  1. CISPLATIN. [Suspect]
     Active Substance: CISPLATIN
     Dates: end: 20200707

REACTIONS (8)
  - Fanconi syndrome [None]
  - Hypophagia [None]
  - Oropharyngeal pain [None]
  - Hypocalcaemia [None]
  - Hypomagnesaemia [None]
  - Hypokalaemia [None]
  - Radiation mucositis [None]
  - Stomatitis [None]

NARRATIVE: CASE EVENT DATE: 20200714
